FAERS Safety Report 15159935 (Version 1)
Quarter: 2018Q3

REPORT INFORMATION
  Report Type: Spontaneous
  Country: US (occurrence: US)
  Receive Date: 20180718
  Receipt Date: 20180718
  Transmission Date: 20181010
  Serious: Yes (Other)
  Sender: FDA-Public Use
  Company Number: US-ANIPHARMA-2018-US-010516

PATIENT
  Age: 36 Year
  Sex: Male

DRUGS (2)
  1. RISPERIDONE. [Suspect]
     Active Substance: RISPERIDONE
     Indication: SCHIZOPHRENIA
  2. LITHIUM CARBONATE (NON?SPECIFIC) [Suspect]
     Active Substance: LITHIUM
     Indication: SCHIZOPHRENIA

REACTIONS (1)
  - Priapism [Unknown]
